FAERS Safety Report 9301384 (Version 2)
Quarter: 2013Q2

REPORT INFORMATION
  Report Type: Spontaneous
  Country: US (occurrence: US)
  Receive Date: 20130521
  Receipt Date: 20130606
  Transmission Date: 20140414
  Serious: No
  Sender: FDA-Public Use
  Company Number: US-009507513-1305USA012297

PATIENT
  Sex: Female
  Weight: 66.21 kg

DRUGS (8)
  1. ZEGERID OTC CAPSULES [Suspect]
     Indication: GASTROOESOPHAGEAL REFLUX DISEASE
     Dosage: 20 MG, QD THEN BID
     Route: 048
     Dates: start: 201206, end: 201303
  2. ZEGERID OTC CAPSULES [Suspect]
     Indication: MEDICAL OBSERVATION
     Dosage: UNK, UNKNOWN
     Route: 048
  3. ZEGERID OTC CAPSULES [Suspect]
     Dosage: UNK, UNKNOWN
     Route: 048
  4. ZEGERID OTC CAPSULES [Suspect]
     Dosage: UNK, UNKNOWN
     Route: 048
  5. ZEGERID OTC CAPSULES [Suspect]
     Dosage: UNK, UNKNOWN
     Route: 048
  6. ZEGERID OTC CAPSULES [Suspect]
     Dosage: UNK, UNKNOWN
     Route: 048
  7. ZEGERID OTC CAPSULES [Suspect]
     Dosage: UNK, UNKNOWN
     Route: 048
  8. NEXIUM [Concomitant]
     Indication: PRODUCT USED FOR UNKNOWN INDICATION
     Dosage: UNK, UNKNOWN

REACTIONS (3)
  - Drug effect decreased [Unknown]
  - Overdose [Unknown]
  - Incorrect drug administration duration [Unknown]
